FAERS Safety Report 12916658 (Version 2)
Quarter: 2016Q4

REPORT INFORMATION
  Report Type: Spontaneous
  Country: US (occurrence: US)
  Receive Date: 20161107
  Receipt Date: 20161226
  Transmission Date: 20170207
  Serious: No
  Sender: FDA-Public Use
  Company Number: US-JAZZ-2016-US-017184

PATIENT
  Age: 69 Year
  Sex: Female

DRUGS (30)
  1. DOCUSATE CALCIUM. [Concomitant]
     Active Substance: DOCUSATE CALCIUM
  2. FLAX SEED [Concomitant]
     Active Substance: FLAX SEED
  3. FOSAMAX [Concomitant]
     Active Substance: ALENDRONATE SODIUM
  4. DULOXETINE HYDROCHLORIDE. [Concomitant]
     Active Substance: DULOXETINE HYDROCHLORIDE
  5. CITRUCEL [Concomitant]
     Active Substance: METHYLCELLULOSE (4000 MPA.S)
  6. XANAX [Concomitant]
     Active Substance: ALPRAZOLAM
  7. ZYRTEC [Concomitant]
     Active Substance: CETIRIZINE HYDROCHLORIDE
  8. XYREM [Suspect]
     Active Substance: SODIUM OXYBATE
     Dosage: 4.5 G, BID
     Route: 048
     Dates: start: 201012, end: 2016
  9. ASPIRIN. [Concomitant]
     Active Substance: ASPIRIN
  10. LEVSIN [Concomitant]
     Active Substance: HYOSCYAMINE SULFATE
  11. MAGNESIUM [Concomitant]
     Active Substance: MAGNESIUM
  12. METROGEL [Concomitant]
     Active Substance: METRONIDAZOLE
  13. ATENOLOL. [Concomitant]
     Active Substance: ATENOLOL
  14. KETOTIFEN FUMARATE. [Concomitant]
     Active Substance: KETOTIFEN FUMARATE
  15. MULTI VITAMIN [Concomitant]
     Active Substance: VITAMINS
  16. RANEXA [Concomitant]
     Active Substance: RANOLAZINE
  17. XYREM [Suspect]
     Active Substance: SODIUM OXYBATE
     Dosage: 3.75 G, BID
     Route: 048
     Dates: start: 2016
  18. CALCIUM CITRATE + D [Concomitant]
  19. VAGIFEM [Concomitant]
     Active Substance: ESTRADIOL
  20. NASACORT ALLERGY 24HR [Concomitant]
     Active Substance: TRIAMCINOLONE ACETONIDE
  21. LEXAPRO [Concomitant]
     Active Substance: ESCITALOPRAM OXALATE
  22. XYREM [Suspect]
     Active Substance: SODIUM OXYBATE
     Indication: APNOEA
     Dosage: 2.25 G, BID
     Route: 048
     Dates: start: 201006, end: 201006
  23. ALLEGRA [Concomitant]
     Active Substance: FEXOFENADINE HYDROCHLORIDE
  24. CLARITIN [Concomitant]
     Active Substance: LORATADINE
  25. LIPITOR [Concomitant]
     Active Substance: ATORVASTATIN CALCIUM
  26. PHILLIPS COLON HEALTH [Concomitant]
  27. XYREM [Suspect]
     Active Substance: SODIUM OXYBATE
     Dosage: DOSE ADJUSTMENTS
     Route: 048
     Dates: start: 201006, end: 201012
  28. ALPHA LIPOIC ACID [Concomitant]
     Active Substance: .ALPHA.-LIPOIC ACID
  29. CICLOPIROX OLAMINE. [Concomitant]
     Active Substance: CICLOPIROX OLAMINE
  30. FISH OIL [Concomitant]
     Active Substance: FISH OIL

REACTIONS (3)
  - Incorrect dose administered [Unknown]
  - Ligament sprain [Unknown]
  - Somnolence [Unknown]

NARRATIVE: CASE EVENT DATE: 201608
